FAERS Safety Report 25179517 (Version 1)
Quarter: 2025Q2

REPORT INFORMATION
  Report Type: Spontaneous
  Country: US (occurrence: None)
  Receive Date: 20250409
  Receipt Date: 20250409
  Transmission Date: 20250716
  Serious: Yes (Life-Threatening, Hospitalization)
  Sender: FDA-CTU
  Company Number: None

PATIENT
  Age: 43 Year
  Sex: Female

DRUGS (2)
  1. CEPHALEXIN [Suspect]
     Active Substance: CEPHALEXIN
     Indication: Infection
     Dosage: FREQUENCY : 4 TIMES A DAY;?
     Route: 048
     Dates: start: 20241231, end: 20250101
  2. FLUCONAZOLE [Suspect]
     Active Substance: FLUCONAZOLE
     Route: 048
     Dates: start: 20241231, end: 20250101

REACTIONS (3)
  - Oedema [None]
  - Erythema multiforme [None]
  - Pruritus [None]

NARRATIVE: CASE EVENT DATE: 20250101
